FAERS Safety Report 5717733-7 (Version None)
Quarter: 2008Q2

REPORT INFORMATION
  Report Type: 
  Country: None (occurrence: None)
  Receive Date: 20080425
  Receipt Date: 20080414
  Transmission Date: 20081010
  Serious: Yes (Hospitalization)
  Sender: FDA-Public Use
  Company Number: US-AMGEN-STX272395

PATIENT
  Sex: Female

DRUGS (2)
  1. ENBREL [Suspect]
     Indication: RHEUMATOID ARTHRITIS
     Route: 058
     Dates: start: 20040101
  2. METHOTREXATE [Concomitant]
     Indication: RHEUMATOID ARTHRITIS
     Route: 065
     Dates: start: 20040101

REACTIONS (16)
  - ARTHRITIS [None]
  - BLOOD CHOLESTEROL INCREASED [None]
  - CARDIAC VENTRICULAR DISORDER [None]
  - CONVULSION [None]
  - FALL [None]
  - HIATUS HERNIA [None]
  - HYPERTENSION [None]
  - INFLUENZA [None]
  - JOINT SWELLING [None]
  - NERVOUS SYSTEM DISORDER [None]
  - PNEUMONIA [None]
  - SYNCOPE [None]
  - SYNOVIAL CYST [None]
  - TRAUMATIC BRAIN INJURY [None]
  - URINARY TRACT INFECTION [None]
  - VARICOSE VEIN OPERATION [None]
